FAERS Safety Report 6705069-7 (Version None)
Quarter: 2010Q2

REPORT INFORMATION
  Report Type: 
  Country: None (occurrence: None)
  Receive Date: 20100430
  Receipt Date: 20100427
  Transmission Date: 20101027
  Serious: Yes (Life-Threatening, Hospitalization)
  Sender: FDA-Public Use
  Company Number: D0066458A

PATIENT
  Sex: Male

DRUGS (2)
  1. TWINRIX [Suspect]
     Indication: PROPHYLAXIS
     Route: 065
     Dates: start: 20090703, end: 20090703
  2. MALARONE [Suspect]
     Route: 048
     Dates: start: 20090809, end: 20090901

REACTIONS (15)
  - APATHY [None]
  - BLOOD CREATINE PHOSPHOKINASE INCREASED [None]
  - CHROMATURIA [None]
  - CIRCULATORY COLLAPSE [None]
  - DIARRHOEA [None]
  - FATIGUE [None]
  - GLYCOGEN STORAGE DISEASE TYPE II [None]
  - GLYCOGEN STORAGE DISEASE TYPE VII [None]
  - GLYCOGEN STORAGE DISORDER [None]
  - HAEMODIALYSIS [None]
  - LISTLESS [None]
  - MITOCHONDRIAL MYOPATHY [None]
  - MULTI-ORGAN FAILURE [None]
  - RENAL FAILURE ACUTE [None]
  - RHABDOMYOLYSIS [None]
